FAERS Safety Report 6663363-2 (Version None)
Quarter: 2010Q1

REPORT INFORMATION
  Report Type: 
  Country: None (occurrence: None)
  Receive Date: 20100331
  Receipt Date: 20100331
  Transmission Date: 20100710
  Serious: Yes (Life-Threatening, Hospitalization, Disabling, Other)
  Sender: FDA-Public Use
  Company Number: None

PATIENT
  Age: 24 Year
  Sex: Male
  Weight: 63.5036 kg

DRUGS (1)
  1. OPANA [Suspect]
     Indication: INTENTIONAL DRUG MISUSE
     Dosage: 15MG 1 NASAL
     Route: 045

REACTIONS (4)
  - APNOEA [None]
  - ASPIRATION [None]
  - INTENTIONAL DRUG MISUSE [None]
  - OVERDOSE [None]
